FAERS Safety Report 6579893-8 (Version None)
Quarter: 2010Q1

REPORT INFORMATION
  Report Type: 
  Country: None (occurrence: None)
  Receive Date: 20100212
  Receipt Date: 20100202
  Transmission Date: 20100710
  Serious: Yes (Other)
  Sender: FDA-Public Use
  Company Number: GB-JNJFOC-20100202252

PATIENT
  Age: 12 Year
  Sex: Female
  Weight: 48 kg

DRUGS (5)
  1. PARACETAMOL [Suspect]
     Route: 048
  2. PARACETAMOL [Suspect]
     Indication: OSTEOMYELITIS
     Route: 048
  3. FLOXACILLIN SODIUM [Suspect]
     Indication: OSTEOMYELITIS
     Route: 048
  4. FLOXACILLIN SODIUM [Suspect]
     Indication: DRUG USE FOR UNKNOWN INDICATION
     Route: 030
  5. FUCIDINE CAP [Suspect]
     Indication: OSTEOMYELITIS
     Route: 048

REACTIONS (1)
  - AGRANULOCYTOSIS [None]
